FAERS Safety Report 13389523 (Version 3)
Quarter: 2017Q2

REPORT INFORMATION
  Report Type: Spontaneous
  Country: DE (occurrence: DE)
  Receive Date: 20170330
  Receipt Date: 20170609
  Transmission Date: 20170830
  Serious: Yes (Hospitalization)
  Sender: FDA-Public Use
  Company Number: DE-SA-2017SA050693

PATIENT
  Age: 27 Year
  Sex: Female

DRUGS (1)
  1. AUBAGIO [Suspect]
     Active Substance: TERIFLUNOMIDE
     Indication: MULTIPLE SCLEROSIS
     Route: 048
     Dates: start: 20140103

REACTIONS (2)
  - Condition aggravated [Recovering/Resolving]
  - Panic disorder [Recovering/Resolving]

NARRATIVE: CASE EVENT DATE: 20170321
